FAERS Safety Report 5504942-5 (Version None)
Quarter: 2007Q4

REPORT INFORMATION
  Report Type: 
  Country: None (occurrence: None)
  Receive Date: 20071102
  Receipt Date: 20071025
  Transmission Date: 20080405
  Serious: Yes (Other)
  Sender: FDA-Public Use
  Company Number: US-TYCO HEALTHCARE/MALLINCKRODT-T200701311

PATIENT

DRUGS (1)
  1. OPTIMARK [Suspect]
     Indication: NUCLEAR MAGNETIC RESONANCE IMAGING
     Dosage: 18 ML (8 ML LEFT ARM, 10 ML RIGHT ARM), SINGLE
     Route: 042

REACTIONS (2)
  - EYE IRRITATION [None]
  - EYE SWELLING [None]
